FAERS Safety Report 5364515-4 (Version None)
Quarter: 2007Q2

REPORT INFORMATION
  Report Type: 
  Country: None (occurrence: None)
  Receive Date: 20070530
  Receipt Date: 20070117
  Transmission Date: 20071010
  Serious: No
  Sender: FDA-Public Use
  Company Number: 2007PV028574

PATIENT
  Age: 70 Year
  Sex: Female
  Weight: 86.1834 kg

DRUGS (7)
  1. BYETTA [Suspect]
     Indication: DIABETES MELLITUS NON-INSULIN-DEPENDENT
     Dosage: 5;10 MCG;QAM;SC;  5;10 MCG;BID;SC
     Route: 058
     Dates: start: 20061201, end: 20070101
  2. BYETTA [Suspect]
     Indication: DIABETES MELLITUS NON-INSULIN-DEPENDENT
     Dosage: 5;10 MCG;QAM;SC;  5;10 MCG;BID;SC
     Route: 058
     Dates: start: 20070109, end: 20070101
  3. BYETTA [Suspect]
     Indication: DIABETES MELLITUS NON-INSULIN-DEPENDENT
     Dosage: 5;10 MCG;QAM;SC;  5;10 MCG;BID;SC
     Route: 058
     Dates: start: 20070109, end: 20070101
  4. BYETTA [Suspect]
     Indication: DIABETES MELLITUS NON-INSULIN-DEPENDENT
     Dosage: 5;10 MCG;QAM;SC;  5;10 MCG;BID;SC
     Route: 058
     Dates: start: 20070101
  5. AVANDIA [Concomitant]
  6. METFORMIN HCL [Concomitant]
  7. LACTAID [Concomitant]

REACTIONS (3)
  - BLOOD GLUCOSE INCREASED [None]
  - CONSTIPATION [None]
  - NAUSEA [None]
